FAERS Safety Report 5843974-4 (Version None)
Quarter: 2008Q3

REPORT INFORMATION
  Report Type: 
  Country: None (occurrence: None)
  Receive Date: 20080813
  Receipt Date: 20080801
  Transmission Date: 20090109
  Serious: No
  Sender: FDA-Public Use
  Company Number: BR-ROCHE-579470

PATIENT
  Sex: Female
  Weight: 64 kg

DRUGS (1)
  1. ROACUTAN [Suspect]
     Indication: ACNE
     Dosage: STRENGTH: 10-20MG/CAP
     Route: 048
     Dates: end: 20070201

REACTIONS (2)
  - NO ADVERSE EVENT [None]
  - PREGNANCY [None]
